FAERS Safety Report 25963158 (Version 1)
Quarter: 2025Q4

REPORT INFORMATION
  Report Type: Spontaneous
  Country: US (occurrence: US)
  Receive Date: 20251027
  Receipt Date: 20251027
  Transmission Date: 20260118
  Serious: Yes (Hospitalization, Other)
  Sender: APOTEX
  Company Number: US-APOTEX-2025AP031478

PATIENT
  Age: 64 Year
  Sex: Female

DRUGS (1)
  1. RAMIPRIL [Suspect]
     Active Substance: RAMIPRIL
     Indication: Hypertension
     Dosage: 600 MILLIGRAM
     Route: 048

REACTIONS (10)
  - Vasoplegia syndrome [Recovering/Resolving]
  - Peritonitis [Recovering/Resolving]
  - Distributive shock [Recovering/Resolving]
  - Pneumatosis intestinalis [Recovering/Resolving]
  - Blood lactic acid increased [Not Recovered/Not Resolved]
  - Overdose [Recovering/Resolving]
  - Acute kidney injury [Not Recovered/Not Resolved]
  - Shock [Recovering/Resolving]
  - Drug-induced liver injury [Recovering/Resolving]
  - Hypotension [Recovering/Resolving]
